FAERS Safety Report 9820906 (Version 1)
Quarter: 2013Q4

REPORT INFORMATION
  Report Type: Spontaneous
  Country: US (occurrence: None)
  Receive Date: 20131028
  Receipt Date: 20131028
  Transmission Date: 20140711
  Serious: Yes (Other)
  Sender: FDA-Public Use
  Company Number: 2013US001566

PATIENT
  Age: 37 Year
  Sex: Male
  Weight: 129 kg

DRUGS (9)
  1. ICLUSIG (PONATINIB) TABLET, 45MG [Suspect]
     Indication: CHRONIC MYELOID LEUKAEMIA
     Route: 048
     Dates: start: 20130406
  2. PAXIL (PAROXETINE HYDROCHLORIDE) [Concomitant]
  3. MORPHINE SULFATE (MORPHINE SULFATE) INJECTION [Concomitant]
  4. PROCARDIA (NIFEDIPINE) [Concomitant]
  5. MAXZIDE (HYDROCHLOROTHIAZIDE, TRIAMTERENE) [Concomitant]
  6. XANAX (ALPRAZOLAM) [Concomitant]
  7. HYDROCODONE (HYDROCODONE) [Concomitant]
  8. COREG (CARVEDILOL) [Concomitant]
  9. ZANAFLEX (TIZANIDINE HYDROCHLORIDE) [Concomitant]

REACTIONS (2)
  - Fatigue [None]
  - Hepatic enzyme increased [None]
